FAERS Safety Report 22154958 (Version 7)
Quarter: 2023Q2

REPORT INFORMATION
  Report Type: Report from Study
  Country: PH (occurrence: None)
  Receive Date: 20230330
  Receipt Date: 20230511
  Transmission Date: 20230722
  Serious: Yes (Hospitalization)
  Sender: FDA-Public Use
  Company Number: PH-Eisai Medical Research-EC-2023-137189

PATIENT
  Age: 71 Year
  Sex: Male
  Weight: 52.1 kg

DRUGS (23)
  1. LENVATINIB [Suspect]
     Active Substance: LENVATINIB
     Indication: Clear cell renal cell carcinoma
     Dosage: STARTING AT 20 MILLIGRAM, FLUCTUATED DOSAGE
     Route: 048
     Dates: start: 20221215, end: 20230216
  2. LENVATINIB [Suspect]
     Active Substance: LENVATINIB
     Route: 048
     Dates: start: 20230223
  3. PEMBROLIZUMAB [Suspect]
     Active Substance: PEMBROLIZUMAB
     Indication: Clear cell renal cell carcinoma
     Route: 041
     Dates: start: 20221215, end: 20230126
  4. PEMBROLIZUMAB [Suspect]
     Active Substance: PEMBROLIZUMAB
     Route: 041
     Dates: start: 20230330
  5. BELZUTIFAN [Suspect]
     Active Substance: BELZUTIFAN
     Indication: Clear cell renal cell carcinoma
     Route: 048
     Dates: start: 20221215, end: 20230216
  6. BELZUTIFAN [Suspect]
     Active Substance: BELZUTIFAN
     Dosage: STARTING DOSE 120 MG, FLUCTUATED DOSE
     Route: 048
     Dates: start: 20230217
  7. METFORMIN [Concomitant]
     Active Substance: METFORMIN HYDROCHLORIDE
     Dates: start: 201301
  8. CARVEDILOL [Concomitant]
     Active Substance: CARVEDILOL
     Dates: start: 201301
  9. ROSUVASTATIN [Concomitant]
     Active Substance: ROSUVASTATIN
     Dates: start: 201301
  10. CLOVIX [CLOPIDOGREL] [Concomitant]
     Dates: start: 201301
  11. PROZELAX [Concomitant]
     Dates: start: 202204
  12. ANORO ELLIPTA [Concomitant]
     Active Substance: UMECLIDINIUM BROMIDE\VILANTEROL TRIFENATATE
     Dates: start: 202109
  13. NASOFLO [Concomitant]
     Dates: start: 202208
  14. RIVOTRIL [Concomitant]
     Active Substance: CLONAZEPAM
     Dates: start: 202112
  15. MELATONIN [Concomitant]
     Active Substance: MELATONIN
     Dates: start: 202112
  16. IMMUNPRO [Concomitant]
     Dates: start: 202109
  17. CYANOCOBALAMIN\PYRIDOXAMINE HYDROCHLORIDE\THIAMINE HYDROCHLORIDE [Concomitant]
     Active Substance: CYANOCOBALAMIN\PYRIDOXAMINE HYDROCHLORIDE\THIAMINE HYDROCHLORIDE
     Dates: start: 202109
  18. AMLODIPINE [Concomitant]
     Active Substance: AMLODIPINE BESYLATE
     Dates: start: 20221224
  19. LOSARTAN [Concomitant]
     Active Substance: LOSARTAN
     Dates: start: 20221229
  20. HYDROCHLOROTHIAZIDE [Concomitant]
     Active Substance: HYDROCHLOROTHIAZIDE
     Dates: start: 20221229
  21. LEMBOREXANT [Concomitant]
     Active Substance: LEMBOREXANT
     Route: 048
     Dates: start: 20230119
  22. TRANEXAMIC ACID [Concomitant]
     Active Substance: TRANEXAMIC ACID
     Dates: start: 20230121
  23. ACETAMINOPHEN [Concomitant]
     Active Substance: ACETAMINOPHEN
     Dates: start: 20230126, end: 20230126

REACTIONS (1)
  - Anaemia [Recovered/Resolved]

NARRATIVE: CASE EVENT DATE: 20230209
